FAERS Safety Report 5210560-9 (Version None)
Quarter: 2007Q1

REPORT INFORMATION
  Report Type: 
  Country: None (occurrence: None)
  Receive Date: 20070117
  Receipt Date: 20070108
  Transmission Date: 20070707
  Serious: Yes (Hospitalization)
  Sender: FDA-Public Use
  Company Number: FR-JNJFOC-20070101903

PATIENT
  Age: 52 Year
  Sex: Female

DRUGS (2)
  1. REMICADE [Suspect]
     Route: 042
  2. REMICADE [Suspect]
     Indication: PSORIASIS
     Dosage: THIRD INFUSION
     Route: 042

REACTIONS (4)
  - DYSPNOEA [None]
  - FACE OEDEMA [None]
  - PUSTULAR PSORIASIS [None]
  - SLEEP APNOEA SYNDROME [None]
